FAERS Safety Report 18313450 (Version 1)
Quarter: 2020Q3

REPORT INFORMATION
  Report Type: Spontaneous
  Country: ES (occurrence: ES)
  Receive Date: 20200925
  Receipt Date: 20200925
  Transmission Date: 20201103
  Serious: Yes (Hospitalization)
  Sender: FDA-Public Use
  Company Number: ES-CADILA HEALTHCARE LIMITED-ES-ZYDUS-028370

PATIENT

DRUGS (7)
  1. BISOPROLOL [Concomitant]
     Active Substance: BISOPROLOL
     Dosage: 2.5 MILLIGRAM,2,5 MG DIA,(INTERVAL :24 HOURS)
     Route: 048
     Dates: start: 20170730
  2. LOSARTAN. [Suspect]
     Active Substance: LOSARTAN
     Indication: PRODUCT USED FOR UNKNOWN INDICATION
     Dosage: 50 MILLIGRAM,50 MG DIA,(INTERVAL :24 HOURS)
     Route: 048
     Dates: start: 20170730, end: 20171212
  3. APIXABAN [Concomitant]
     Active Substance: APIXABAN
     Dosage: 1?0?1 ()
     Route: 048
     Dates: start: 20170730
  4. INSULIN 2 [Concomitant]
     Indication: INSULIN-REQUIRING TYPE 2 DIABETES MELLITUS
     Dosage: 40 INTERNATIONAL UNIT,10?0?30,(INTERVAL :1 DAYS)
     Route: 059
     Dates: start: 20170730
  5. INSULIN NOVO RAPITARD [Concomitant]
     Indication: INSULIN-REQUIRING TYPE 2 DIABETES MELLITUS
     Dosage: 8 INTERNATIONAL UNIT,2?2?4,(INTERVAL :1 DAYS)
     Route: 059
     Dates: start: 20170730
  6. ENALAPRIL [Suspect]
     Active Substance: ENALAPRIL
     Indication: PRODUCT USED FOR UNKNOWN INDICATION
     Dosage: 10 MILLIGRAM,10MG CADA 12 HORAS,(INTERVAL :12 HOURS)
     Route: 048
     Dates: start: 20170730
  7. CARDURAN [Concomitant]
     Active Substance: DOXAZOSIN MESYLATE
     Dosage: 4 MILLIGRAM,1?0?0,(INTERVAL :24 HOURS)
     Route: 048
     Dates: start: 20170730

REACTIONS (2)
  - Electrocardiogram abnormal [Recovered/Resolved]
  - Hyperkalaemia [Recovered/Resolved]

NARRATIVE: CASE EVENT DATE: 20171212
